FAERS Safety Report 8411994-1 (Version None)
Quarter: 2012Q2

REPORT INFORMATION
  Report Type: 
  Country: None (occurrence: None)
  Receive Date: 20120605
  Receipt Date: 20120517
  Transmission Date: 20120825
  Serious: No
  Sender: FDA-Public Use
  Company Number: US-AMGEN-USASP2012031178

PATIENT
  Age: 43 Year
  Sex: Female

DRUGS (1)
  1. ENBREL [Suspect]
     Indication: PSORIASIS
     Dosage: 50 MG, 2 TIMES/WK
     Dates: start: 20120112

REACTIONS (7)
  - INJECTION SITE HAEMORRHAGE [None]
  - VERTIGO [None]
  - FEELING COLD [None]
  - INJECTION SITE HAEMATOMA [None]
  - HOT FLUSH [None]
  - INJECTION SITE PAIN [None]
  - PSORIASIS [None]
